FAERS Safety Report 20719960 (Version 1)
Quarter: 2022Q2

REPORT INFORMATION
  Report Type: Spontaneous
  Country: JP (occurrence: JP)
  Receive Date: 20220418
  Receipt Date: 20220418
  Transmission Date: 20220721
  Serious: Yes (Other)
  Sender: FDA-Public Use
  Company Number: JP-PFIZER INC-202200533324

PATIENT
  Age: 100 Year

DRUGS (2)
  1. SPIRONOLACTONE [Suspect]
     Active Substance: SPIRONOLACTONE
  2. ISOSORBIDE DINITRATE [Concomitant]
     Active Substance: ISOSORBIDE DINITRATE
     Indication: Cardiac disorder
     Route: 048

REACTIONS (1)
  - Oedema [Unknown]
